FAERS Safety Report 5091913-9 (Version None)
Quarter: 2006Q3

REPORT INFORMATION
  Report Type: 
  Country: None (occurrence: None)
  Receive Date: 20060825
  Receipt Date: 20060811
  Transmission Date: 20061208
  Serious: Yes (Hospitalization)
  Sender: FDA-Public Use
  Company Number: S06-SWE-03140-01

PATIENT
  Age: 19 Year
  Sex: Male

DRUGS (4)
  1. CITALOPRAM HYDROBROMIDE [Suspect]
     Indication: DEPRESSION
     Dates: start: 20060501, end: 20060501
  2. CITALOPRAM HYDROBROMIDE [Suspect]
     Indication: DEPRESSION
  3. PROPAVAN (PROPIOMAZINE MALEATE) [Suspect]
     Indication: DEPRESSION
     Dates: start: 20060501, end: 20060501
  4. PROPAVAN (PROPIOMAZINE MALEATE) [Suspect]
     Indication: DEPRESSION

REACTIONS (6)
  - COMA [None]
  - DRUG TOXICITY [None]
  - LOSS OF CONSCIOUSNESS [None]
  - OVERDOSE [None]
  - PCO2 DECREASED [None]
  - SUICIDE ATTEMPT [None]
